FAERS Safety Report 5526843-9 (Version None)
Quarter: 2007Q4

REPORT INFORMATION
  Report Type: 
  Country: None (occurrence: None)
  Receive Date: 20071120
  Receipt Date: 20070912
  Transmission Date: 20080405
  Serious: Yes (Other)
  Sender: FDA-Public Use
  Company Number: 2007076378

PATIENT
  Age: 64 Year
  Sex: Male

DRUGS (10)
  1. TIKOSYN [Suspect]
     Indication: ATRIAL FIBRILLATION
     Dosage: 1000 MCG (500 MCG,1 IN 12 HR)
     Dates: start: 20070101
  2. DILTIAZEM [Suspect]
     Dosage: 480 MG (DAILY)
  3. DICLOFENAC SODIUM [Suspect]
     Dates: end: 20070101
  4. BENAZEPRIL HCL [Concomitant]
  5. FLOMAX [Concomitant]
  6. COUMADIN [Concomitant]
  7. DOXAZOSIN MESYLATE [Concomitant]
  8. METHOCARBAMOL [Concomitant]
  9. TORSEMIDE [Concomitant]
  10. XOPENEX [Concomitant]

REACTIONS (5)
  - ABNORMAL DREAMS [None]
  - DYSPNOEA [None]
  - OEDEMA PERIPHERAL [None]
  - TACHYCARDIA [None]
  - WEIGHT INCREASED [None]
